FAERS Safety Report 21827108 (Version 5)
Quarter: 2024Q3

REPORT INFORMATION
  Report Type: Spontaneous
  Country: US (occurrence: US)
  Receive Date: 20230106
  Receipt Date: 20240722
  Transmission Date: 20241016
  Serious: No
  Sender: AMGEN
  Company Number: US-AMGEN-USASP2022227764

PATIENT
  Age: 50 Year
  Sex: Female

DRUGS (31)
  1. OTEZLA [Suspect]
     Active Substance: APREMILAST
     Indication: Psoriatic arthropathy
     Dosage: 30 MILLIGRAM, BID
     Route: 048
     Dates: start: 20230105, end: 202405
  2. ENBREL [Suspect]
     Active Substance: BENZYL ALCOHOL\ETANERCEPT
     Indication: Product used for unknown indication
     Dosage: 50 MILLIGRAM (4=4)
     Route: 065
  3. PREDNISONE [Suspect]
     Active Substance: PREDNISONE
     Indication: Product used for unknown indication
     Dosage: 10 MILLIGRAM
     Route: 065
  4. ALBUTEROL [Concomitant]
     Active Substance: ALBUTEROL
     Dosage: UNK
     Route: 065
  5. AZITHROMYCIN [Concomitant]
     Active Substance: AZITHROMYCIN
     Dosage: 250 MILLIGRAM
     Route: 065
  6. BACLOFEN [Concomitant]
     Active Substance: BACLOFEN
     Dosage: 10 MILLIGRAM
     Route: 065
  7. BENADRYL [Concomitant]
     Active Substance: DIPHENHYDRAMINE HYDROCHLORIDE
     Dosage: 25 MILLIGRAM
     Route: 065
  8. DESONIDE [Concomitant]
     Active Substance: DESONIDE
     Dosage: UNK
     Route: 065
  9. FOLIC ACID [Concomitant]
     Active Substance: FOLIC ACID
     Dosage: 1000 MICROGRAM
     Route: 065
  10. HORIZANT [Concomitant]
     Active Substance: GABAPENTIN ENACARBIL
     Dosage: 600 MILLIGRAM
     Route: 065
  11. HUMIRA [Concomitant]
     Active Substance: ADALIMUMAB
     Dosage: PEN INJ 40/0.4ML
     Route: 065
  12. LISINOPRIL [Concomitant]
     Active Substance: LISINOPRIL
     Dosage: 20 MILLIGRAM
     Route: 065
  13. METHYLPREDNISOLONE [Concomitant]
     Active Substance: METHYLPREDNISOLONE
     Dosage: 4 MILLIGRAM
     Route: 065
  14. MONTELUKAST [Concomitant]
     Active Substance: MONTELUKAST SODIUM
     Dosage: 10 MILLIGRAM
     Route: 065
  15. OSELTAMIVIR [Concomitant]
     Active Substance: OSELTAMIVIR
     Dosage: 75 MILLIGRAM
     Route: 065
  16. PANTOPRAZOLE [Concomitant]
     Active Substance: PANTOPRAZOLE
     Dosage: 20 MILLIGRAM
     Route: 065
  17. PROAIR RESPICLICK [Concomitant]
     Active Substance: ALBUTEROL SULFATE
     Dosage: UNK
     Route: 065
  18. ROSUVASTATIN [Concomitant]
     Active Substance: ROSUVASTATIN
     Dosage: 5 MILLIGRAM
     Route: 065
  19. SYMBICORT [Concomitant]
     Active Substance: BUDESONIDE\FORMOTEROL FUMARATE DIHYDRATE
     Dosage: 160-4.5
     Route: 065
  20. TIZANIDINE [Concomitant]
     Active Substance: TIZANIDINE
     Dosage: 2 MILLIGRAM
     Route: 065
  21. TRIAMCINOLONE [Concomitant]
     Active Substance: TRIAMCINOLONE
     Dosage: UNK
     Route: 065
  22. CLOBETASOL [Concomitant]
     Active Substance: CLOBETASOL
     Dosage: UNK
  23. CYCLOBENZAPRINE [Concomitant]
     Active Substance: CYCLOBENZAPRINE
     Dosage: UNK
  24. DULOXETINE [Concomitant]
     Active Substance: DULOXETINE
     Dosage: UNK
  25. FAMOTIDINE [Concomitant]
     Active Substance: FAMOTIDINE
  26. FLUTICASONE [Concomitant]
     Active Substance: FLUTICASONE
  27. GAVILYTE G [Concomitant]
     Active Substance: POLYETHYLENE GLYCOL 3350\POTASSIUM CHLORIDE\SODIUM BICARBONATE\SODIUM CHLORIDE\SODIUM SULFATE
     Dosage: UNK
  28. METHOCARBAMOL [Concomitant]
     Active Substance: METHOCARBAMOL
  29. NURTEC ODT [Concomitant]
     Active Substance: RIMEGEPANT SULFATE
  30. ONDANSETRON [Concomitant]
     Active Substance: ONDANSETRON
     Dosage: UNK
  31. TOBRAMYCIN AND DEXAMETHASONE [Concomitant]
     Active Substance: DEXAMETHASONE\TOBRAMYCIN

REACTIONS (7)
  - Surgery [Unknown]
  - Blood test abnormal [Not Recovered/Not Resolved]
  - Headache [Not Recovered/Not Resolved]
  - Diarrhoea [Not Recovered/Not Resolved]
  - Memory impairment [Not Recovered/Not Resolved]
  - Infection [Unknown]
  - Illness [Unknown]

NARRATIVE: CASE EVENT DATE: 20230331
